FAERS Safety Report 8862650 (Version 1)
Quarter: 2012Q4

REPORT INFORMATION
  Report Type: 
  Country: US (occurrence: US)
  Receive Date: 20121026
  Receipt Date: 20121026
  Transmission Date: 20130627
  Serious: Yes (Other)
  Sender: FDA-Public Use
  Company Number: US-AMGEN-USASP2012067645

PATIENT
  Age: 3 Year
  Sex: Male

DRUGS (1)
  1. ENBREL [Suspect]
     Indication: JUVENILE ARTHRITIS
     Dosage: 0.3 ml or 7.5 mg weekly
     Dates: start: 201206, end: 20121012

REACTIONS (5)
  - Pyrexia [Recovered/Resolved]
  - Diarrhoea [Recovered/Resolved]
  - Retching [Recovered/Resolved]
  - Feeding tube complication [Recovered/Resolved]
  - Dehydration [Recovered/Resolved]
